FAERS Safety Report 23157090 (Version 1)
Quarter: 2023Q4

REPORT INFORMATION
  Report Type: Spontaneous
  Country: US (occurrence: US)
  Receive Date: 20231108
  Receipt Date: 20231108
  Transmission Date: 20240109
  Serious: No
  Sender: FDA-Public Use
  Company Number: US-JNJFOC-20231050271

PATIENT
  Sex: Female

DRUGS (4)
  1. TYLENOL EXTRA STRENGTH [Suspect]
     Active Substance: ACETAMINOPHEN
     Indication: Arthralgia
     Dosage: PRODUCT START DATE 4 TO 5 YEARS
     Route: 065
  2. TYLENOL EXTRA STRENGTH [Suspect]
     Active Substance: ACETAMINOPHEN
     Dosage: PRODUCT START DATE 4 TO 5 YEARS
     Route: 065
  3. TYLENOL [Suspect]
     Active Substance: ACETAMINOPHEN
     Indication: Arthralgia
     Dosage: STARTED 4 OR 5 YEARS
     Route: 065
  4. TYLENOL [Suspect]
     Active Substance: ACETAMINOPHEN
     Route: 065

REACTIONS (2)
  - Insomnia [Unknown]
  - Incorrect dose administered [Unknown]
